FAERS Safety Report 8486987-9 (Version None)
Quarter: 2012Q3

REPORT INFORMATION
  Report Type: 
  Country: None (occurrence: None)
  Receive Date: 20120704
  Receipt Date: 20120628
  Transmission Date: 20120928
  Serious: Yes (Other)
  Sender: FDA-Public Use
  Company Number: PHHY2012FR052505

PATIENT
  Sex: Female

DRUGS (6)
  1. SPASFON [Concomitant]
     Indication: UTERINE CONTRACTIONS ABNORMAL
     Dosage: 2 DF, TID
  2. ACETAMINOPHEN [Concomitant]
     Indication: PAIN
     Dosage: 2 DF, TID
  3. IBUPROFEN [Concomitant]
     Indication: BREAST ENGORGEMENT
     Dosage: 3 DF, UNK
     Dates: start: 20120605, end: 20120612
  4. PAROXETINE [Concomitant]
     Indication: PAIN
  5. PARLODEL [Suspect]
     Indication: LACTATION INHIBITION THERAPY
     Dosage: UNK UKN, UNK
     Route: 048
     Dates: start: 20120606, end: 20120620
  6. ACETAMINOPHEN [Concomitant]
     Indication: BREAST ENGORGEMENT

REACTIONS (4)
  - BODY TEMPERATURE INCREASED [None]
  - PAIN IN EXTREMITY [None]
  - ERYTHEMA [None]
  - THROMBOPHLEBITIS SUPERFICIAL [None]
